FAERS Safety Report 8151749-9 (Version None)
Quarter: 2012Q1

REPORT INFORMATION
  Report Type: 
  Country: None (occurrence: None)
  Receive Date: 20120221
  Receipt Date: 20120209
  Transmission Date: 20120608
  Serious: No
  Sender: FDA-Public Use
  Company Number: US-BIOGENIDEC-2011BI033385

PATIENT
  Sex: Male

DRUGS (1)
  1. TYSABRI [Suspect]
     Indication: MULTIPLE SCLEROSIS
     Route: 042
     Dates: start: 20110404

REACTIONS (8)
  - SOMNOLENCE [None]
  - DIZZINESS [None]
  - PAIN [None]
  - ASTHENIA [None]
  - HYPOCHONDRIASIS [None]
  - FATIGUE [None]
  - MALAISE [None]
  - CHEST PAIN [None]
